FAERS Safety Report 20516325 (Version 2)
Quarter: 2022Q2

REPORT INFORMATION
  Report Type: Spontaneous
  Country: US (occurrence: None)
  Receive Date: 20220225
  Receipt Date: 20220422
  Transmission Date: 20220720
  Serious: Yes (Other)
  Sender: FDA-Public Use
  Company Number: 2022A079937

PATIENT
  Age: 18360 Day
  Sex: Female
  Weight: 80.3 kg

DRUGS (1)
  1. EVUSHELD [Suspect]
     Active Substance: CILGAVIMAB\TIXAGEVIMAB
     Indication: Immunodeficiency
     Dosage: ONCE/SINGLE ADMINISTRATION
     Route: 030
     Dates: start: 20220131

REACTIONS (2)
  - Cheilitis [Not Recovered/Not Resolved]
  - Gingival pain [Not Recovered/Not Resolved]

NARRATIVE: CASE EVENT DATE: 20220213
